FAERS Safety Report 8906916 (Version 2)
Quarter: 2012Q4

REPORT INFORMATION
  Report Type: 
  Country: SE (occurrence: SE)
  Receive Date: 20121114
  Receipt Date: 20121206
  Transmission Date: 20130627
  Serious: Yes (Other)
  Sender: FDA-Public Use
  Company Number: SE-PFIZER INC-2012279599

PATIENT
  Age: 84 Year
  Sex: Male
  Weight: 102 kg

DRUGS (10)
  1. TOVIAZ [Suspect]
     Indication: URINARY URGENCY
     Dosage: 4 mg, 1x/day
     Route: 048
     Dates: start: 20121016, end: 20121018
  2. METOPROLOL [Concomitant]
     Dosage: 100 mg, 1x/day
  3. FURIX [Concomitant]
     Dosage: 20 mg, 1x/day
  4. TROMBYL [Concomitant]
     Dosage: 75 mg, 1x/day
  5. IMDUR [Concomitant]
     Dosage: 60 mg, 1x/day
  6. GLYTRIN [Concomitant]
     Dosage: UNK
  7. LIPITOR [Concomitant]
     Dosage: 20 mg, UNK
  8. NOVOMIX [Concomitant]
     Dosage: 24+0+34
  9. NOVOMIX [Concomitant]
     Dosage: 24 UNK, 1x/day
  10. NOVORAPID [Concomitant]
     Dosage: UNK

REACTIONS (1)
  - Angina pectoris [Recovered/Resolved]
